FAERS Safety Report 4791393-4 (Version None)
Quarter: 2005Q4

REPORT INFORMATION
  Report Type: 
  Country: None (occurrence: None)
  Receive Date: 20051007
  Receipt Date: 20050929
  Transmission Date: 20060501
  Serious: Yes (Other)
  Sender: FDA-Public Use
  Company Number: FI-ROCHE-419407

PATIENT
  Age: 17 Year
  Sex: Male

DRUGS (2)
  1. ROACCUTAN [Suspect]
     Indication: ACNE
     Route: 048
     Dates: start: 20050515, end: 20050815
  2. ROACCUTAN [Suspect]
     Route: 048
     Dates: start: 20050815

REACTIONS (1)
  - GOITRE [None]
